FAERS Safety Report 19231112 (Version 2)
Quarter: 2021Q2

REPORT INFORMATION
  Report Type: Spontaneous
  Country: US (occurrence: US)
  Receive Date: 20210507
  Receipt Date: 20210617
  Transmission Date: 20210717
  Serious: Yes (Other)
  Sender: FDA-Public Use
  Company Number: US-ASTRAZENECA-2021A379293

PATIENT
  Age: 1033 Month
  Sex: Female
  Weight: 51.3 kg

DRUGS (1)
  1. SYMBICORT [Suspect]
     Active Substance: BUDESONIDE\FORMOTEROL FUMARATE DIHYDRATE
     Indication: CHRONIC OBSTRUCTIVE PULMONARY DISEASE
     Dosage: 160/4.5 MCG 2 PUFFS TWICE A DAY FOR MANY YEARS
     Route: 055

REACTIONS (6)
  - Incorrect dose administered [Unknown]
  - Aphonia [Unknown]
  - Dyspnoea [Unknown]
  - Cough [Unknown]
  - Drug delivery system issue [Unknown]
  - Dysphonia [Unknown]

NARRATIVE: CASE EVENT DATE: 202104
